FAERS Safety Report 4639686-5 (Version None)
Quarter: 2005Q2

REPORT INFORMATION
  Report Type: 
  Country: None (occurrence: None)
  Receive Date: 20050328
  Receipt Date: 20041221
  Transmission Date: 20051028
  Serious: No
  Sender: FDA-Public Use
  Company Number: USA041286686

PATIENT
  Age: 67 Year
  Sex: Male
  Weight: 103 kg

DRUGS (4)
  1. STRATTERA [Suspect]
     Dosage: 60 MG DAY
     Dates: start: 20040901
  2. DIOVAN HCT [Concomitant]
  3. ZOCOR (SIMVASTATIN RATIOPHARM) [Concomitant]
  4. TIAZAC [Concomitant]

REACTIONS (1)
  - DYSURIA [None]
